FAERS Safety Report 7876654 (Version 3)
Quarter: 2014Q3

REPORT INFORMATION
  Report Type: Spontaneous
  Country: JP (occurrence: None)
  Receive Date: 20110310
  Receipt Date: 20140808
  Transmission Date: 20150326
  Serious: Yes (Death)
  Sender: FDA-Public Use
  Company Number: JP-20110013

PATIENT
  Age: 75 Year
  Sex: Male

DRUGS (1)
  1. LIPIODOL [Suspect]
     Active Substance: ETHIODIZED OIL
     Indication: THERAPEUTIC EMBOLISATION
     Dosage: UNK (1 IN 1 D), INTRA-ARTERIAL
     Route: 013
     Dates: start: 20090729, end: 20090729

REACTIONS (8)
  - Hepatic function abnormal [None]
  - Neoplasm malignant [None]
  - Alanine aminotransferase increased [None]
  - Liver abscess [None]
  - Angina pectoris [None]
  - Malignant neoplasm progression [None]
  - Off label use [None]
  - Aspartate aminotransferase increased [None]
